FAERS Safety Report 9918158 (Version 2)
Quarter: 2014Q1

REPORT INFORMATION
  Report Type: Spontaneous
  Country: US (occurrence: US)
  Receive Date: 20140223
  Receipt Date: 20140223
  Transmission Date: 20141002
  Serious: No
  Sender: FDA-Public Use
  Company Number: US-ALLERGAN-1310385US

PATIENT
  Age: 34 Year
  Sex: Female

DRUGS (4)
  1. OZURDEX [Suspect]
     Indication: UVEITIS
     Dosage: 0.7 MG, SINGLE
     Route: 031
  2. OZURDEX [Suspect]
     Indication: MACULAR OEDEMA
  3. OZURDEX [Suspect]
     Indication: RETINAL VEIN OCCLUSION
  4. VALTREX [Concomitant]
     Dosage: 1 G, THREE TIMES A DAY

REACTIONS (3)
  - Vision blurred [Recovered/Resolved]
  - Complication of device insertion [Recovered/Resolved]
  - Hypotony of eye [Recovered/Resolved]
